FAERS Safety Report 6102791-0 (Version None)
Quarter: 2009Q1

REPORT INFORMATION
  Report Type: 
  Country: None (occurrence: None)
  Receive Date: 20090304
  Receipt Date: 20090303
  Transmission Date: 20090719
  Serious: No
  Sender: FDA-Public Use
  Company Number: US-B.I. PHARMACEUTICALS,INC./RIDGEFIELD-2009-BP-02579BP

PATIENT
  Age: 64 Year
  Sex: Female

DRUGS (3)
  1. ZANTAC 75 [Suspect]
     Indication: GASTRITIS
     Route: 048
  2. ZANTAC 75 [Suspect]
     Indication: GASTROOESOPHAGEAL REFLUX DISEASE
  3. ZANTAC 150 [Suspect]
     Indication: GASTRITIS
     Dosage: 300MG

REACTIONS (1)
  - DIZZINESS [None]
